FAERS Safety Report 15660792 (Version 1)
Quarter: 2018Q4

REPORT INFORMATION
  Report Type: Spontaneous
  Country: FR (occurrence: FR)
  Receive Date: 20181127
  Receipt Date: 20181127
  Transmission Date: 20190205
  Serious: Yes (Congenital Anomaly)
  Sender: FDA-Public Use
  Company Number: FR-LUNDBECK-DKLU2057433

PATIENT
  Age: 19 Year
  Sex: Male

DRUGS (2)
  1. URBANYL [Suspect]
     Active Substance: CLOBAZAM
     Indication: MATERNAL EXPOSURE DURING PREGNANCY
     Route: 064
  2. DEPAKINE CHRONO [Suspect]
     Active Substance: VALPROATE SODIUM
     Indication: MATERNAL EXPOSURE DURING PREGNANCY
     Route: 064

REACTIONS (8)
  - Foetal exposure during pregnancy [Unknown]
  - Cryptorchism [Not Recovered/Not Resolved]
  - Dyscalculia [Not Recovered/Not Resolved]
  - Hypermetropia [Not Recovered/Not Resolved]
  - Dysgraphia [Not Recovered/Not Resolved]
  - Dyspraxia [Not Recovered/Not Resolved]
  - Astigmatism [Not Recovered/Not Resolved]
  - Aphasia [Not Recovered/Not Resolved]
